FAERS Safety Report 9352089 (Version 2)
Quarter: 2013Q3

REPORT INFORMATION
  Report Type: Spontaneous
  Country: US (occurrence: US)
  Receive Date: 20130617
  Receipt Date: 20130815
  Transmission Date: 20140515
  Serious: No
  Sender: FDA-Public Use
  Company Number: US-B.I. PHARMACEUTICALS,INC./RIDGEFIELD-2013-BI-16459BP

PATIENT
  Sex: Female
  Weight: 98.43 kg

DRUGS (4)
  1. MIRAPEX [Suspect]
     Indication: RESTLESS LEGS SYNDROME
     Dosage: 0.5 MG
     Route: 048
     Dates: start: 20130513
  2. MIRAPEX [Suspect]
     Dosage: 0.75 MG
     Route: 048
     Dates: start: 2011, end: 20130113
  3. MIRAPEX [Suspect]
     Dosage: 0.75 MG
     Route: 048
     Dates: start: 20130423
  4. PRENATAL VITAMINS [Concomitant]

REACTIONS (1)
  - Small for dates baby [Not Recovered/Not Resolved]
